FAERS Safety Report 25930185 (Version 2)
Quarter: 2025Q4

REPORT INFORMATION
  Report Type: Spontaneous
  Country: EU (occurrence: EU)
  Receive Date: 20251016
  Receipt Date: 20251126
  Transmission Date: 20260118
  Serious: Yes (Other)
  Sender: INCYTE
  Company Number: EU-INCYTE CORPORATION-2025IN011213

PATIENT
  Age: 71 Year

DRUGS (2)
  1. PEMAZYRE [Suspect]
     Active Substance: PEMIGATINIB
     Indication: Cholangiocarcinoma
     Dosage: 13.5 MILLIGRAM, QD (2 WEEKS IN A ROW, 1 WEEK BREAK/3WEEKS) (9 CYCLES)
     Route: 065
  2. PEMAZYRE [Suspect]
     Active Substance: PEMIGATINIB
     Dosage: 13.5 MILLIGRAM, QD (2 WEEKS IN A ROW, 1 WEAK BREAK/3WEEKS) (10TH CYCLE)
     Route: 065

REACTIONS (9)
  - Cataract [Unknown]
  - Cholangiocarcinoma [Unknown]
  - Salivary hyposecretion [Unknown]
  - Visual impairment [Unknown]
  - Disease progression [Unknown]
  - Taste disorder [Unknown]
  - Hyperphosphataemia [Unknown]
  - Alopecia [Unknown]
  - Nail disorder [Unknown]
